FAERS Safety Report 21900382 (Version 1)
Quarter: 2023Q1

REPORT INFORMATION
  Report Type: Spontaneous
  Country: US (occurrence: US)
  Receive Date: 20230123
  Receipt Date: 20230123
  Transmission Date: 20230417
  Serious: Yes (Other)
  Sender: FDA-Public Use
  Company Number: US-NOVOPROD-965984

PATIENT
  Sex: Male
  Weight: 124.7 kg

DRUGS (14)
  1. OZEMPIC [Suspect]
     Active Substance: SEMAGLUTIDE
     Indication: Product used for unknown indication
     Dosage: UNK
     Route: 058
  2. KORLYM [Suspect]
     Active Substance: MIFEPRISTONE
     Indication: Cushing^s syndrome
     Dosage: 600MG, 300 MG, 600 MG
     Dates: start: 202101
  3. CYCLOBENZAPRINE [Concomitant]
     Active Substance: CYCLOBENZAPRINE
  4. DILTIAZEM [Concomitant]
     Active Substance: DILTIAZEM
  5. GLIPIZIDE [Concomitant]
     Active Substance: GLIPIZIDE
     Indication: Type 2 diabetes mellitus
  6. HUMULIN R [Concomitant]
     Active Substance: INSULIN HUMAN
     Indication: Type 2 diabetes mellitus
  7. HYDROCHLOROTHIAZIDE [Concomitant]
     Active Substance: HYDROCHLOROTHIAZIDE
  8. LISINOPRIL [Concomitant]
     Active Substance: LISINOPRIL
  9. METOPROLOL [Concomitant]
     Active Substance: METOPROLOL
  10. OMEPRAZOLE [Concomitant]
     Active Substance: OMEPRAZOLE
  11. PIOGLITAZONE [Concomitant]
     Active Substance: PIOGLITAZONE
  12. ROSUVASTATIN [Concomitant]
     Active Substance: ROSUVASTATIN
  13. MELOXICAM [Concomitant]
     Active Substance: MELOXICAM
  14. EPLERENONE [Concomitant]
     Active Substance: EPLERENONE

REACTIONS (5)
  - Retching [Unknown]
  - Decreased appetite [Unknown]
  - Increased appetite [Unknown]
  - Diabetes mellitus inadequate control [Unknown]
  - Nausea [Unknown]
